FAERS Safety Report 6451125-0 (Version None)
Quarter: 2009Q4

REPORT INFORMATION
  Report Type: 
  Country: None (occurrence: None)
  Receive Date: 20091123
  Receipt Date: 20091113
  Transmission Date: 20100525
  Serious: Yes (Hospitalization)
  Sender: FDA-Public Use
  Company Number: FR-PFIZER INC-2009292110

PATIENT
  Age: 54 Year
  Sex: Male

DRUGS (5)
  1. FLUOROURACIL [Suspect]
     Indication: COLORECTAL CANCER METASTATIC
     Dosage: 800 MG
     Route: 040
     Dates: start: 20070321
  2. FLUOROURACIL [Suspect]
     Dosage: 4800 MG
     Route: 041
     Dates: start: 20070321
  3. IRINOTECAN HCL [Suspect]
     Indication: COLORECTAL CANCER METASTATIC
     Dosage: 520 MG, 1X/DAY
     Dates: start: 20070321
  4. FOLINIC ACID [Suspect]
     Indication: COLORECTAL CANCER METASTATIC
     Dosage: 800 MG, 1X/DAY
     Dates: start: 20070321
  5. AVASTIN [Suspect]
     Indication: COLORECTAL CANCER METASTATIC
     Dosage: 425 MG, 1X/DAY
     Dates: start: 20070321

REACTIONS (1)
  - HYPERTENSION [None]
